FAERS Safety Report 5763812-8 (Version None)
Quarter: 2008Q2

REPORT INFORMATION
  Report Type: 
  Country: None (occurrence: None)
  Receive Date: 20080606
  Receipt Date: 20080606
  Transmission Date: 20081010
  Serious: Yes (Disabling, Other)
  Sender: FDA-Public Use
  Company Number: None

PATIENT
  Sex: Male
  Weight: 79.3795 kg

DRUGS (3)
  1. COPAXONE [Suspect]
     Indication: MUSCULAR WEAKNESS
     Dosage: ONE INJECTION EVERYDAY IM
     Route: 030
     Dates: start: 20060101, end: 20070101
  2. TRAMADOL HCL [Concomitant]
  3. METHYLPREDNISOLONE [Concomitant]

REACTIONS (4)
  - FALL [None]
  - GAIT DISTURBANCE [None]
  - MOVEMENT DISORDER [None]
  - MUSCULAR WEAKNESS [None]
